FAERS Safety Report 15876500 (Version 2)
Quarter: 2019Q2

REPORT INFORMATION
  Report Type: Spontaneous
  Country: DE (occurrence: DE)
  Receive Date: 20190126
  Receipt Date: 20190514
  Transmission Date: 20190711
  Serious: Yes (Other)
  Sender: FDA-Public Use
  Company Number: PHHY2019DE015789

PATIENT
  Sex: Female

DRUGS (2)
  1. SYSTANE HYDRATION (ALC) [Suspect]
     Active Substance: HYALURONATE SODIUM\POLYETHYLENE GLYCOLS\PROPYLENE GLYCOL
     Indication: PRODUCT USED FOR UNKNOWN INDICATION
     Dosage: UNK
     Route: 047
     Dates: start: 201812
  2. MARCUMAR [Concomitant]
     Active Substance: PHENPROCOUMON
     Indication: PRODUCT USED FOR UNKNOWN INDICATION
     Route: 065

REACTIONS (1)
  - Eye haemorrhage [Recovered/Resolved]

NARRATIVE: CASE EVENT DATE: 201812
